FAERS Safety Report 22365764 (Version 1)
Quarter: 2023Q2

REPORT INFORMATION
  Report Type: Spontaneous
  Country: SE (occurrence: SE)
  Receive Date: 20230525
  Receipt Date: 20230525
  Transmission Date: 20230721
  Serious: Yes (Hospitalization)
  Sender: FDA-Public Use
  Company Number: None

PATIENT
  Age: 55 Year
  Sex: Female

DRUGS (1)
  1. ONDANSETRON [Suspect]
     Active Substance: ONDANSETRON
     Indication: Vomiting
     Dosage: 8 MG WAS GIVEN 2 TIMES WITH SEVERAL/FEW HOURS INTERVALS, STRENGTH: 2 AND 2.5
     Dates: start: 202304

REACTIONS (4)
  - Nystagmus [Recovered/Resolved]
  - Vision blurred [Recovering/Resolving]
  - Muscle twitching [Recovered/Resolved]
  - Blindness transient [Recovering/Resolving]

NARRATIVE: CASE EVENT DATE: 20230430
